FAERS Safety Report 18530725 (Version 1)
Quarter: 2020Q4

REPORT INFORMATION
  Report Type: Spontaneous
  Country: FR (occurrence: FR)
  Receive Date: 20201121
  Receipt Date: 20201121
  Transmission Date: 20210114
  Serious: Yes (Other)
  Sender: FDA-Public Use
  Company Number: FR-009507513-1710FRA005285

PATIENT
  Age: 33 Year
  Sex: Female

DRUGS (1)
  1. NEXPLANON [Suspect]
     Active Substance: ETONOGESTREL
     Indication: HORMONAL CONTRACEPTION
     Dosage: 20 NG, QD
     Route: 058
     Dates: start: 20160628, end: 20170914

REACTIONS (1)
  - Pregnancy with implant contraceptive [Not Recovered/Not Resolved]

NARRATIVE: CASE EVENT DATE: 20170914
